FAERS Safety Report 11050204 (Version 1)
Quarter: 2015Q2

REPORT INFORMATION
  Report Type: Spontaneous
  Country: US (occurrence: US)
  Receive Date: 20150421
  Receipt Date: 20150421
  Transmission Date: 20150821
  Serious: No
  Sender: FDA-Public Use
  Company Number: US-ASTRAZENECA-2015SE34772

PATIENT
  Sex: Female
  Weight: 56.7 kg

DRUGS (3)
  1. SYNTHROID [Concomitant]
     Active Substance: LEVOTHYROXINE SODIUM
     Indication: THYROID DISORDER
  2. PULMICORT FLEXHALER [Suspect]
     Active Substance: BUDESONIDE
     Indication: COUGH
     Route: 055
     Dates: start: 20150330
  3. VITAMINS [Concomitant]
     Active Substance: VITAMINS
     Dosage: DAILY

REACTIONS (4)
  - Product used for unknown indication [Unknown]
  - Oral discomfort [Unknown]
  - Glaucoma [Unknown]
  - Therapeutic response unexpected [Not Recovered/Not Resolved]
